FAERS Safety Report 15722518 (Version 1)
Quarter: 2018Q4

REPORT INFORMATION
  Report Type: Spontaneous
  Country: US (occurrence: US)
  Receive Date: 20181213
  Receipt Date: 20181213
  Transmission Date: 20190205
  Serious: Yes (Hospitalization)
  Sender: FDA-Public Use
  Company Number: None

PATIENT
  Age: 54 Year
  Sex: Male

DRUGS (7)
  1. TACROLIMUS 1MG QAM [Concomitant]
  2. LOSARTAN 25MG QD [Concomitant]
  3. MYCOPHENOLIC ACID DELAYED RELEASE TABLETS [Suspect]
     Active Substance: MYCOPHENOLIC ACID
     Indication: IMMUNOSUPPRESSANT DRUG THERAPY
     Dates: start: 20180611, end: 20180726
  4. PREDNISONE 5MG QAM [Concomitant]
  5. ROSUVASTATIN 20MG QD [Concomitant]
  6. BRAND MYFORTIC 180MG DR TABLETS BID [Concomitant]
     Dates: start: 20180726
  7. TACROLIMUS 0.5MG QPM [Concomitant]

REACTIONS (3)
  - Product measured potency issue [None]
  - Cytomegalovirus infection [None]
  - Product quality issue [None]

NARRATIVE: CASE EVENT DATE: 20180627
